FAERS Safety Report 5719911-X (Version None)
Quarter: 2008Q2

REPORT INFORMATION
  Report Type: 
  Country: None (occurrence: None)
  Receive Date: 20080428
  Receipt Date: 20080428
  Transmission Date: 20081010
  Serious: Yes (Hospitalization)
  Sender: FDA-Public Use
  Company Number: None

PATIENT
  Age: 4 Week
  Sex: Male
  Weight: 3.3 kg

DRUGS (12)
  1. ANGIOMAX [Suspect]
     Dosage: 2.5 MG BOLUS, IV BOLUS, 1.75 MG/KG, HR, INTRAVENOUS
     Route: 040
     Dates: start: 20071220, end: 20071220
  2. MORPHINE [Suspect]
     Indication: PAIN
     Dosage: 1 MG, SINGLE, ORAL
     Route: 048
     Dates: start: 20071220, end: 20071220
  3. MORPHINE [Suspect]
     Indication: SEDATION
     Dosage: 1 MG, SINGLE, ORAL
     Route: 048
     Dates: start: 20071220, end: 20071220
  4. PENTOBARBITAL CAP [Suspect]
     Indication: PAIN
     Dosage: 10 MG, QD ORAL, 10MG/0.2ML, SINGLE, ORAL
     Route: 048
     Dates: start: 20071220, end: 20071220
  5. PENTOBARBITAL CAP [Suspect]
     Indication: SEDATION
     Dosage: 10 MG, QD ORAL, 10MG/0.2ML, SINGLE, ORAL
     Route: 048
     Dates: start: 20071220, end: 20071220
  6. VERSED [Suspect]
     Indication: SEDATION
     Dosage: 0.3 MG, QD, INTRAVENOUS
     Route: 042
     Dates: start: 20071220, end: 20071220
  7. KETAMINE HCL [Suspect]
     Dosage: 0.3 MG, QD, INTRAVENOUS
     Route: 042
     Dates: start: 20071220, end: 20071220
  8. DEXTROSE 5% 0.2% NACL [Concomitant]
  9. PROSTAGLADINS [Concomitant]
  10. METOCLOPRAMIDE [Concomitant]
  11. LIDOCAINE (LIDOCAINE, PRILOCAINE) [Concomitant]
  12. REGLAN / 00041901/ (METOCLOPRAMIDE) [Concomitant]

REACTIONS (13)
  - ATRIAL FLUTTER [None]
  - BASE EXCESS DECREASED [None]
  - BLOOD PH DECREASED [None]
  - HEART RATE INCREASED [None]
  - HYPOTENSION [None]
  - OXYGEN SATURATION DECREASED [None]
  - PCO2 INCREASED [None]
  - PO2 DECREASED [None]
  - PULMONARY VALVE STENOSIS [None]
  - RESPIRATORY RATE INCREASED [None]
  - SUPRAVENTRICULAR TACHYCARDIA [None]
  - THERAPEUTIC RESPONSE UNEXPECTED [None]
  - TREATMENT FAILURE [None]
